FAERS Safety Report 22831706 (Version 7)
Quarter: 2023Q4

REPORT INFORMATION
  Report Type: Report from Study
  Country: AR (occurrence: AR)
  Receive Date: 20230817
  Receipt Date: 20231027
  Transmission Date: 20240109
  Serious: Yes (Hospitalization, Other)
  Sender: FDA-Public Use
  Company Number: AR-002147023-NVSC2022AR150170

PATIENT
  Age: 40 Year
  Sex: Female

DRUGS (6)
  1. COSENTYX [Suspect]
     Active Substance: SECUKINUMAB
     Indication: Psoriasis
     Dosage: 300 MG, QMO
     Route: 058
     Dates: start: 20220616
  2. COSENTYX [Suspect]
     Active Substance: SECUKINUMAB
     Dosage: 300 MG, QMO
     Route: 058
  3. COSENTYX [Suspect]
     Active Substance: SECUKINUMAB
     Dosage: UNK
     Route: 065
     Dates: start: 20230223
  4. COSENTYX [Suspect]
     Active Substance: SECUKINUMAB
     Dosage: 300 MG, QMO
     Route: 003
  5. COSENTYX [Suspect]
     Active Substance: SECUKINUMAB
     Dosage: 300 MG, QMO
     Route: 058
  6. COSENTYX [Suspect]
     Active Substance: SECUKINUMAB
     Dosage: 30 MG, QW
     Route: 058

REACTIONS (17)
  - Papilloma viral infection [Recovered/Resolved]
  - Uterine mass [Unknown]
  - Weight decreased [Not Recovered/Not Resolved]
  - Injection site pain [Unknown]
  - Injection site bruising [Unknown]
  - Psoriasis [Unknown]
  - Memory impairment [Unknown]
  - Anxiety [Unknown]
  - Malaise [Unknown]
  - Pruritus [Unknown]
  - Nervousness [Unknown]
  - Fatigue [Unknown]
  - Movement disorder [Unknown]
  - Injection site haemorrhage [Unknown]
  - Incorrect route of product administration [Unknown]
  - Accidental exposure to product [Recovered/Resolved with Sequelae]
  - Wrong technique in device usage process [Unknown]

NARRATIVE: CASE EVENT DATE: 20220623
